FAERS Safety Report 8995907 (Version 1)
Quarter: 2013Q1

REPORT INFORMATION
  Report Type: Report from Study
  Country: BE (occurrence: BE)
  Receive Date: 20130103
  Receipt Date: 20130103
  Transmission Date: 20140127
  Serious: Yes (Other)
  Sender: FDA-Public Use
  Company Number: BE-PFIZER INC-2012332371

PATIENT
  Sex: Male

DRUGS (4)
  1. CISPLATIN [Suspect]
     Indication: SQUAMOUS CELL CARCINOMA
     Dosage: UNK, 4CYCLES
  2. DOCETAXEL [Suspect]
     Indication: SQUAMOUS CELL CARCINOMA
     Dosage: UNK, 4CYCLES
  3. FLUOROURACIL [Suspect]
     Indication: SQUAMOUS CELL CARCINOMA
     Dosage: UNK, 4CYCLES
  4. LAPATINIB [Suspect]
     Indication: SQUAMOUS CELL CARCINOMA
     Dosage: 500 MG/DAY (4 CYCLES)

REACTIONS (3)
  - Decreased appetite [Unknown]
  - Stomatitis [Unknown]
  - Duodenal ulcer [Unknown]
